FAERS Safety Report 6694601-8 (Version None)
Quarter: 2010Q2

REPORT INFORMATION
  Report Type: 
  Country: None (occurrence: None)
  Receive Date: 20100423
  Receipt Date: 20100419
  Transmission Date: 20101027
  Serious: Yes (Death, Hospitalization)
  Sender: FDA-Public Use
  Company Number: BR-ELI_LILLY_AND_COMPANY-BR201004004997

PATIENT
  Sex: Female
  Weight: 49.8 kg

DRUGS (9)
  1. GEMCITABINE HCL [Suspect]
     Indication: BREAST CANCER METASTATIC
     Dosage: 1250 MG/M2, OTHER
     Route: 042
     Dates: start: 20100304
  2. GEMCITABINE HCL [Suspect]
     Dosage: 1250 MG/M2, OTHER
     Route: 042
     Dates: start: 20100415
  3. PACLITAXEL [Suspect]
     Indication: BREAST CANCER METASTATIC
     Dosage: 175 MG/M2, OTHER
     Route: 042
     Dates: start: 20100304
  4. PACLITAXEL [Suspect]
     Dosage: 175 MG/M2, OTHER
     Route: 042
     Dates: start: 20100415
  5. METFORMIN HCL [Concomitant]
     Dosage: UNK, UNKNOWN
     Route: 065
     Dates: start: 20070701
  6. GLIBENCLAMIDE [Concomitant]
     Dosage: UNK, UNKNOWN
     Route: 065
     Dates: start: 20070201
  7. CAPTOPRIL [Concomitant]
     Dosage: UNK, UNKNOWN
     Route: 065
     Dates: start: 20100223
  8. PROPRANOLOL [Concomitant]
     Dosage: UNK, UNKNOWN
     Route: 065
     Dates: start: 20100223
  9. HYDROCHLOROTHIAZIDE [Concomitant]
     Dosage: UNK, UNKNOWN
     Route: 065
     Dates: start: 20070201

REACTIONS (2)
  - DEATH [None]
  - HOSPITALISATION [None]
